FAERS Safety Report 8536042-4 (Version None)
Quarter: 2012Q2

REPORT INFORMATION
  Report Type: 
  Country: None (occurrence: None)
  Receive Date: 20120412
  Receipt Date: 20091030
  Transmission Date: 20120825
  Serious: Yes (Hospitalization, Other)
  Sender: FDA-Public Use
  Company Number: PHEH2009US14926

PATIENT
  Age: 18 Year
  Sex: Male

DRUGS (2)
  1. CLOZARIL [Suspect]
  2. CLOZAPINE [Suspect]
     Indication: SCHIZOAFFECTIVE DISORDER
     Dosage: 150 MG IN THE MORNING AND 350 MG IN THE EVENING
     Dates: start: 20091010

REACTIONS (1)
  - CONVULSION [None]
